FAERS Safety Report 5458030-7 (Version None)
Quarter: 2007Q3

REPORT INFORMATION
  Report Type: 
  Country: None (occurrence: None)
  Receive Date: 20070917
  Receipt Date: 20070917
  Transmission Date: 20080115
  Serious: Yes (Other)
  Sender: FDA-Public Use
  Company Number: None

PATIENT
  Sex: Female

DRUGS (3)
  1. CADUET [Suspect]
     Indication: BLOOD CHOLESTEROL INCREASED
     Dosage: 10/10
     Route: 048
  2. CADUET [Suspect]
     Indication: HYPERTENSION
     Dosage: 10/10
     Route: 048
  3. MAXZIDE [Concomitant]

REACTIONS (1)
  - BLOOD CREATINE PHOSPHOKINASE INCREASED [None]
